FAERS Safety Report 22077057 (Version 2)
Quarter: 2023Q2

REPORT INFORMATION
  Report Type: Report from Study
  Country: US (occurrence: None)
  Receive Date: 20230309
  Receipt Date: 20230414
  Transmission Date: 20230721
  Serious: Yes (Death)
  Sender: FDA-Public Use
  Company Number: US-ROCHE-3298906

PATIENT

DRUGS (1)
  1. VENETOCLAX [Suspect]
     Active Substance: VENETOCLAX
     Indication: Acute myeloid leukaemia
     Dosage: ON 08/NOV/2020, PATIENT COMPLETED CYCLE 3.
     Route: 048
     Dates: start: 20200813, end: 20201129

REACTIONS (1)
  - Death [Fatal]
